FAERS Safety Report 12135569 (Version 2)
Quarter: 2017Q2

REPORT INFORMATION
  Report Type: Spontaneous
  Country: US (occurrence: US)
  Receive Date: 20160302
  Receipt Date: 20170411
  Transmission Date: 20170829
  Serious: Yes (Other)
  Sender: FDA-Public Use
  Company Number: US-JNJFOC-20160211365

PATIENT
  Sex: Male

DRUGS (8)
  1. RISPERDAL [Suspect]
     Active Substance: RISPERIDONE
     Indication: PRODUCT USED FOR UNKNOWN INDICATION
     Route: 048
  2. RISPERDAL [Suspect]
     Active Substance: RISPERIDONE
     Indication: BELLIGERENCE
     Dosage: 1 (UNITS UNSPECIFIED)
     Route: 048
     Dates: start: 200101
  3. RISPERDAL [Suspect]
     Active Substance: RISPERIDONE
     Indication: BELLIGERENCE
     Dosage: 1 (UNITS UNSPECIFIED)
     Route: 048
     Dates: start: 201202
  4. RISPERDAL [Suspect]
     Active Substance: RISPERIDONE
     Indication: BELLIGERENCE
     Dosage: 2 (UNITS UNSPECIFIED)
     Route: 048
  5. RISPERDAL CONSTA [Suspect]
     Active Substance: RISPERIDONE
     Indication: BELLIGERENCE
     Route: 030
  6. RISPERDAL CONSTA [Suspect]
     Active Substance: RISPERIDONE
     Indication: IRRITABILITY
     Route: 030
  7. RISPERDAL [Suspect]
     Active Substance: RISPERIDONE
     Indication: BELLIGERENCE
     Dosage: 1 (UNITS UNSPECIFIED)
     Route: 048
     Dates: start: 1999
  8. RISPERDAL [Suspect]
     Active Substance: RISPERIDONE
     Indication: BELLIGERENCE
     Dosage: 1 (UNITS UNSPECIFIED)
     Route: 048
     Dates: start: 2010, end: 2011

REACTIONS (3)
  - Obesity [Unknown]
  - Gynaecomastia [Unknown]
  - Treatment noncompliance [Unknown]
